FAERS Safety Report 9821108 (Version 1)
Quarter: 2013Q4

REPORT INFORMATION
  Report Type: Spontaneous
  Country: US (occurrence: None)
  Receive Date: 20131025
  Receipt Date: 20131025
  Transmission Date: 20140711
  Serious: Yes (Other)
  Sender: FDA-Public Use
  Company Number: AP356-00043-SPO-US

PATIENT
  Sex: 0

DRUGS (1)
  1. BELVIQ [Suspect]

REACTIONS (2)
  - Abdominal distension [None]
  - Diarrhoea [None]
